FAERS Safety Report 5804997-4 (Version None)
Quarter: 2008Q3

REPORT INFORMATION
  Report Type: 
  Country: None (occurrence: None)
  Receive Date: 20080702
  Receipt Date: 20071113
  Transmission Date: 20090109
  Serious: Yes (Other)
  Sender: FDA-Public Use
  Company Number: US-WYE-H01288607

PATIENT
  Age: 56 Year
  Sex: Female
  Weight: 108.96 kg

DRUGS (1)
  1. ADVIL [Suspect]
     Indication: HEADACHE
     Dosage: 1 TABLET 3X PER 1 DAY, ORAL
     Route: 048
     Dates: start: 20030101, end: 20070901

REACTIONS (1)
  - SKIN ODOUR ABNORMAL [None]
